FAERS Safety Report 4720920-8 (Version None)
Quarter: 2005Q3

REPORT INFORMATION
  Report Type: 
  Country: None (occurrence: None)
  Receive Date: 20050720
  Receipt Date: 20050628
  Transmission Date: 20060218
  Serious: Yes (Other)
  Sender: FDA-Public Use
  Company Number: 2005-01386

PATIENT
  Sex: Female

DRUGS (1)
  1. VELCADE [Suspect]
     Indication: PLASMACYTOMA
     Dosage: INTRAVENOUS
     Route: 042

REACTIONS (1)
  - BLOOD BILIRUBIN INCREASED [None]
